FAERS Safety Report 21897722 (Version 1)
Quarter: 2023Q1

REPORT INFORMATION
  Report Type: Spontaneous
  Country: US (occurrence: None)
  Receive Date: 20230120
  Receipt Date: 20230120
  Transmission Date: 20230418
  Serious: Yes (Hospitalization)
  Sender: FDA-Public Use
  Company Number: None

PATIENT
  Age: 68 Year
  Sex: Male
  Weight: 135.9 kg

DRUGS (16)
  1. BEVACIZUMAB [Suspect]
     Active Substance: BEVACIZUMAB
     Indication: Glioblastoma multiforme
     Dosage: EVERY 2 WEEKS INTRVENOUS DRIP?
     Route: 041
     Dates: start: 20181111, end: 20200519
  2. NIVOLUMAB [Suspect]
     Active Substance: NIVOLUMAB
     Indication: Glioblastoma multiforme
     Dosage: EVERY 2 WEEKS INTRVENOUS
     Route: 042
     Dates: start: 20191111, end: 20200519
  3. IPILIMUMAB [Suspect]
     Active Substance: IPILIMUMAB
  4. KEPPRA [Concomitant]
     Active Substance: LEVETIRACETAM
  5. DEXAMETHASONE [Concomitant]
     Active Substance: DEXAMETHASONE
  6. LAMOTRIGINE [Concomitant]
     Active Substance: LAMOTRIGINE
  7. PEPCID [Concomitant]
     Active Substance: FAMOTIDINE
  8. LEVOTHYROXINE [Concomitant]
     Active Substance: LEVOTHYROXINE
  9. MYRBETRIQ [Concomitant]
     Active Substance: MIRABEGRON
  10. QUETIAPINE [Concomitant]
     Active Substance: QUETIAPINE
  11. TYLENOL [Concomitant]
     Active Substance: ACETAMINOPHEN
  12. ALLOPURINOL [Concomitant]
     Active Substance: ALLOPURINOL
  13. CICLOPIROX [Concomitant]
     Active Substance: CICLOPIROX
  14. DOXYCYCLINE HYCLATE [Concomitant]
     Active Substance: DOXYCYCLINE HYCLATE
  15. ENALAPRIL [Concomitant]
     Active Substance: ENALAPRIL
  16. ESCITALOPRAM [Concomitant]
     Active Substance: ESCITALOPRAM OXALATE

REACTIONS (12)
  - Lethargy [None]
  - Hypersomnia [None]
  - Slow speech [None]
  - Asthenia [None]
  - Gait inability [None]
  - Gait inability [None]
  - Encephalopathy [None]
  - Confusional state [None]
  - Dysarthria [None]
  - Somnolence [None]
  - Malignant neoplasm progression [None]
  - Glioblastoma multiforme [None]

NARRATIVE: CASE EVENT DATE: 20200601
